FAERS Safety Report 25967579 (Version 1)
Quarter: 2025Q4

REPORT INFORMATION
  Report Type: Spontaneous
  Country: US (occurrence: US)
  Receive Date: 20251028
  Receipt Date: 20251028
  Transmission Date: 20260117
  Serious: No
  Sender: SUNOVION
  Company Number: US-SMPA-2025SPA012967

PATIENT
  Age: 51 Year
  Sex: Male

DRUGS (1)
  1. ORGOVYX [Suspect]
     Active Substance: RELUGOLIX
     Indication: Product used for unknown indication
     Dosage: UNK
     Route: 048

REACTIONS (4)
  - Asocial behaviour [Recovering/Resolving]
  - Libido decreased [Recovering/Resolving]
  - Asthenia [Recovering/Resolving]
  - Therapy interrupted [Unknown]
